FAERS Safety Report 5892036-9 (Version None)
Quarter: 2008Q3

REPORT INFORMATION
  Report Type: 
  Country: None (occurrence: None)
  Receive Date: 20080918
  Receipt Date: 20080918
  Transmission Date: 20090109
  Serious: Yes (Other)
  Sender: FDA-Public Use
  Company Number: None

PATIENT
  Age: 46 Year
  Sex: Female
  Weight: 81.6475 kg

DRUGS (1)
  1. PRISTIQ [Suspect]
     Indication: NIGHT SWEATS
     Dosage: 50MG ONCE A DAY PO
     Route: 048
     Dates: start: 20080707, end: 20080915

REACTIONS (5)
  - CONTUSION [None]
  - DIZZINESS [None]
  - FEELING JITTERY [None]
  - HEADACHE [None]
  - PRURITUS [None]
